FAERS Safety Report 13212600 (Version 1)
Quarter: 2017Q1

REPORT INFORMATION
  Report Type: Spontaneous
  Country: US (occurrence: US)
  Receive Date: 20170210
  Receipt Date: 20170210
  Transmission Date: 20170428
  Serious: No
  Sender: FDA-Public Use
  Company Number: US-FERRINGPH-2016FE00941

PATIENT
  Age: 42 Year
  Sex: Female

DRUGS (4)
  1. NOVAREL [Suspect]
     Active Substance: CHORIOGONADOTROPIN ALFA
     Indication: OVULATION INDUCTION
     Dosage: 100000 UNITS, ONCE/SINGLE
     Route: 058
     Dates: start: 20160220, end: 20160220
  2. LUPRON [Concomitant]
     Active Substance: LEUPROLIDE ACETATE
  3. MENOPUR [Concomitant]
     Active Substance: FOLLITROPIN\LUTEINIZING HORMONE
  4. GONAL-F [Concomitant]
     Active Substance: FOLLITROPIN

REACTIONS (2)
  - Incorrect route of drug administration [Unknown]
  - Drug ineffective [Unknown]

NARRATIVE: CASE EVENT DATE: 20160222
